FAERS Safety Report 9575832 (Version 1)
Quarter: 2013Q4

REPORT INFORMATION
  Report Type: Spontaneous
  Country: US (occurrence: US)
  Receive Date: 20131001
  Receipt Date: 20131001
  Transmission Date: 20140711
  Serious: No
  Sender: FDA-Public Use
  Company Number: US-AMGEN-USASP2012083876

PATIENT
  Age: 62 Year
  Sex: Male
  Weight: 82.99 kg

DRUGS (7)
  1. PROCRIT [Suspect]
     Indication: HAEMATOCRIT DECREASED
     Dosage: 40000 UNIT, WEEKLY
     Route: 058
     Dates: start: 20121218
  2. INCIVEK [Concomitant]
     Indication: HEPATITIS C
     Dosage: UNK
  3. PEGASYS [Concomitant]
     Indication: HEPATITIS C
     Dosage: UNK
  4. RIBAVIRIN [Concomitant]
     Indication: HEPATITIS C
     Dosage: UNK
  5. CRESTOR [Concomitant]
     Indication: BLOOD CHOLESTEROL
     Dosage: UNK
     Route: 048
  6. METOPROLOL [Concomitant]
     Indication: HEART RATE
     Dosage: UNK
     Route: 048
  7. RANITIDINE [Concomitant]
     Indication: GASTROOESOPHAGEAL REFLUX DISEASE
     Dosage: UNK
     Route: 048

REACTIONS (2)
  - Fatigue [Not Recovered/Not Resolved]
  - Incorrect product storage [Unknown]
